FAERS Safety Report 9659327 (Version 2)
Quarter: 2013Q4

REPORT INFORMATION
  Report Type: Spontaneous
  Country: US (occurrence: US)
  Receive Date: 20131031
  Receipt Date: 20131031
  Transmission Date: 20140711
  Serious: Yes (Disabling, Other)
  Sender: FDA-Public Use
  Company Number: US-THROMBOGENICS NV-JET-2013-025

PATIENT
  Sex: 0

DRUGS (5)
  1. JETREA [Suspect]
     Indication: PRODUCT USED FOR UNKNOWN INDICATION
     Dosage: 0.125 MG, ONE TIME DOSE
     Route: 031
     Dates: start: 20130213, end: 20130213
  2. LIPTOR [Concomitant]
     Indication: PRODUCT USED FOR UNKNOWN INDICATION
     Dosage: 10 MG, UNK
  3. SINGULAR [Concomitant]
     Indication: PRODUCT USED FOR UNKNOWN INDICATION
     Dosage: 10 MG, UNK
  4. ASMANEX [Concomitant]
     Indication: PRODUCT USED FOR UNKNOWN INDICATION
     Dosage: UNK, PRN
     Route: 055
  5. FISH OIL [Concomitant]
     Indication: PRODUCT USED FOR UNKNOWN INDICATION
     Dosage: UNK TAB, UNK

REACTIONS (6)
  - Retinal oedema [Not Recovered/Not Resolved]
  - Visual acuity reduced [Not Recovered/Not Resolved]
  - Disorientation [Not Recovered/Not Resolved]
  - Eye pain [Not Recovered/Not Resolved]
  - Head discomfort [Not Recovered/Not Resolved]
  - Visual impairment [Not Recovered/Not Resolved]
